APPROVED DRUG PRODUCT: RYANODEX
Active Ingredient: DANTROLENE SODIUM
Strength: 250MG/VIAL
Dosage Form/Route: FOR SUSPENSION;INTRAVENOUS
Application: N205579 | Product #001
Applicant: EAGLE PHARMACEUTICALS INC
Approved: Jul 22, 2014 | RLD: Yes | RS: Yes | Type: RX